FAERS Safety Report 5868751-X (Version None)
Quarter: 2008Q3

REPORT INFORMATION
  Report Type: 
  Country: None (occurrence: None)
  Receive Date: 20080903
  Receipt Date: 20080826
  Transmission Date: 20090109
  Serious: Yes (Hospitalization)
  Sender: FDA-Public Use
  Company Number: IL-AMGEN-UK304334

PATIENT
  Sex: Female

DRUGS (2)
  1. NEULASTIM [Suspect]
     Indication: CHEMOTHERAPY
     Route: 058
  2. TAXOTERE [Concomitant]

REACTIONS (3)
  - LEUKOCYTOSIS [None]
  - PYREXIA [None]
  - SEPSIS [None]
